FAERS Safety Report 10084583 (Version 1)
Quarter: 2014Q2

REPORT INFORMATION
  Report Type: Spontaneous
  Country: US (occurrence: None)
  Receive Date: 20140404
  Receipt Date: 20140404
  Transmission Date: 20141212
  Serious: No
  Sender: FDA-Public Use
  Company Number: 1361085

PATIENT
  Sex: Female

DRUGS (4)
  1. PERJETA [Suspect]
     Indication: BREAST CANCER
     Dosage: 3 CYCLES
  2. HERCEPTIN (TRASTUZUMAB) [Concomitant]
  3. CARBOPLATIN (CARBOPLATIN) [Concomitant]
  4. TAXOTERE (DOCETAXEL) [Concomitant]

REACTIONS (1)
  - Clostridium difficile infection [None]
